FAERS Safety Report 21096601 (Version 5)
Quarter: 2023Q2

REPORT INFORMATION
  Report Type: Other
  Country: US (occurrence: None)
  Receive Date: 20220718
  Receipt Date: 20230413
  Transmission Date: 20230722
  Serious: Yes (Other)
  Sender: FDA-Public Use
  Company Number: US-ROCHE-3137537

PATIENT
  Age: 81 Year
  Sex: Female

DRUGS (4)
  1. XELODA [Suspect]
     Active Substance: CAPECITABINE
     Indication: Colorectal cancer metastatic
     Dosage: TAKE 3 TABLETS BY MOUTH IN THE MORNING AND TAKE 2 TABLETS BY MOUTH EVERY EVENING 2 WEEK ON, 1 WEEK O
     Route: 048
  2. XELODA [Suspect]
     Active Substance: CAPECITABINE
     Indication: Hepatic cancer
  3. XELODA [Suspect]
     Active Substance: CAPECITABINE
     Indication: Colon cancer
  4. XELODA [Suspect]
     Active Substance: CAPECITABINE
     Indication: Neoplasm malignant

REACTIONS (3)
  - Blindness [Unknown]
  - Bedridden [Unknown]
  - Dyspnoea [Unknown]
